FAERS Safety Report 9513507 (Version 1)
Quarter: 2013Q3

REPORT INFORMATION
  Report Type: Spontaneous
  Country: US (occurrence: US)
  Receive Date: 20130910
  Receipt Date: 20130910
  Transmission Date: 20140515
  Serious: Yes (Hospitalization)
  Sender: FDA-Public Use
  Company Number: US-TARO-2013P1008422

PATIENT
  Age: 64 Year
  Sex: Female
  Weight: 78.02 kg

DRUGS (4)
  1. WARFARIN SODIUM TABLETS USP 1MG [Suspect]
     Route: 048
     Dates: start: 201208
  2. WARFARIN SODIUM TABLETS USP 2MG [Suspect]
     Route: 048
     Dates: start: 201208
  3. TEVA WARFARIN 4 MG [Suspect]
     Route: 048
     Dates: start: 201208
  4. TEVA WARFARIN 5 MG [Suspect]
     Route: 048
     Dates: start: 201208

REACTIONS (7)
  - International normalised ratio abnormal [Recovered/Resolved]
  - Blood pressure increased [Unknown]
  - Sensory disturbance [Recovering/Resolving]
  - Lip swelling [Recovered/Resolved]
  - Swelling face [Recovered/Resolved]
  - International normalised ratio decreased [Unknown]
  - Drug ineffective [Unknown]
